FAERS Safety Report 11851890 (Version 3)
Quarter: 2015Q4

REPORT INFORMATION
  Report Type: Spontaneous
  Country: FR (occurrence: FR)
  Receive Date: 20151218
  Receipt Date: 20151230
  Transmission Date: 20160305
  Serious: Yes (Death, Hospitalization)
  Sender: FDA-Public Use
  Company Number: FR-JNJFOC-20151211114

PATIENT
  Age: 33 Year
  Sex: Male

DRUGS (2)
  1. RISPERDAL [Suspect]
     Active Substance: RISPERIDONE
     Indication: SCHIZOPHRENIA
     Route: 048
  2. RISPERDAL CONSTA [Suspect]
     Active Substance: RISPERIDONE
     Indication: PRODUCT USED FOR UNKNOWN INDICATION
     Route: 030

REACTIONS (9)
  - Alcoholism [Fatal]
  - Brain oedema [Fatal]
  - Altered state of consciousness [Fatal]
  - Hyponatraemia [Fatal]
  - Hypothermia [Fatal]
  - Coma [Fatal]
  - Hypokalaemia [Fatal]
  - Polydipsia [Fatal]
  - Vomiting [Fatal]

NARRATIVE: CASE EVENT DATE: 201510
